FAERS Safety Report 9630895 (Version 1)
Quarter: 2013Q4

REPORT INFORMATION
  Report Type: Spontaneous
  Country: FR (occurrence: FR)
  Receive Date: 20131018
  Receipt Date: 20131018
  Transmission Date: 20140711
  Serious: Yes (Other)
  Sender: FDA-Public Use
  Company Number: FR-JNJFOC-20131007401

PATIENT
  Sex: Male

DRUGS (3)
  1. INTELENCE [Suspect]
     Indication: HEPATITIS C
     Dosage: 1 TABLET IN THE MORNING AND IN THE EVENING
     Route: 048
     Dates: start: 201203, end: 201307
  2. ISENTRESS [Concomitant]
     Route: 065
  3. KIVEXA [Concomitant]
     Route: 065

REACTIONS (3)
  - Hepatocellular injury [Unknown]
  - Cholestasis [Unknown]
  - Off label use [Unknown]
